FAERS Safety Report 5007391-1 (Version None)
Quarter: 2006Q2

REPORT INFORMATION
  Report Type: 
  Country: None (occurrence: None)
  Receive Date: 20060518
  Receipt Date: 20060518
  Transmission Date: 20061013
  Serious: Yes (Hospitalization)
  Sender: FDA-Public Use
  Company Number: None

PATIENT
  Age: 64 Year
  Sex: Male
  Weight: 128.6 kg

DRUGS (11)
  1. NIFEDIPINE [Suspect]
  2. ENALAPRIL MALEATE [Concomitant]
  3. COUMADIN [Concomitant]
  4. ATENOLOL [Concomitant]
  5. LANOXIN [Concomitant]
  6. CLONIDINE HCL [Concomitant]
  7. FUROSEMIDE [Concomitant]
  8. POTASSIUM CHLORIDE [Concomitant]
  9. METFORMIN HYDROCHLORIDE [Concomitant]
  10. GLIPIZIDE [Concomitant]
  11. SIMVASTATIN [Concomitant]

REACTIONS (3)
  - HEADACHE [None]
  - OEDEMA [None]
  - RASH [None]
